FAERS Safety Report 9934880 (Version 2)
Quarter: 2014Q1

REPORT INFORMATION
  Report Type: Spontaneous
  Country: FR (occurrence: FR)
  Receive Date: 20140228
  Receipt Date: 20140306
  Transmission Date: 20141002
  Serious: Yes (Hospitalization)
  Sender: FDA-Public Use
  Company Number: FR-BRISTOL-MYERS SQUIBB COMPANY-20336772

PATIENT
  Age: 52 Year
  Sex: Female

DRUGS (4)
  1. ERBITUX SOLN FOR INF [Suspect]
     Indication: ADENOCARCINOMA
     Dates: start: 2011, end: 201201
  2. CISPLATIN [Suspect]
     Indication: ADENOCARCINOMA
     Route: 042
     Dates: start: 2011, end: 201201
  3. ALIMTA [Suspect]
     Dosage: 500MG POWDER FOR SOLUTION
     Route: 042
     Dates: start: 20130522
  4. GEMZAR [Suspect]
     Indication: ADENOCARCINOMA

REACTIONS (2)
  - Pulmonary arterial hypertension [Not Recovered/Not Resolved]
  - Dyspnoea [Not Recovered/Not Resolved]
